FAERS Safety Report 18079013 (Version 1)
Quarter: 2020Q3

REPORT INFORMATION
  Report Type: Spontaneous
  Country: US (occurrence: US)
  Receive Date: 20200727
  Receipt Date: 20200727
  Transmission Date: 20201103
  Serious: Yes (Death)
  Sender: FDA-Public Use
  Company Number: None

PATIENT
  Age: 77 Year
  Sex: Male

DRUGS (18)
  1. CEFUROXIME. [Concomitant]
     Active Substance: CEFUROXIME
  2. LOPERAMIDE [Concomitant]
     Active Substance: LOPERAMIDE
  3. POTASSIUM CLTRATE ER [Concomitant]
  4. MIRTAZAPINE. [Concomitant]
     Active Substance: MIRTAZAPINE
  5. ATORVASTATIN [Concomitant]
     Active Substance: ATORVASTATIN
  6. OXYCODONE [Concomitant]
     Active Substance: OXYCODONE
  7. SODIUM BICARBONATE. [Concomitant]
     Active Substance: SODIUM BICARBONATE
  8. MORPHINE SULFATE. [Concomitant]
     Active Substance: MORPHINE SULFATE
  9. CARVEDILOL. [Concomitant]
     Active Substance: CARVEDILOL
  10. DIPHENOXYLATE/ATROPINE [Concomitant]
     Active Substance: ATROPINE\DIPHENOXYLATE
  11. HYDRALAZINE [Concomitant]
     Active Substance: HYDRALAZINE HYDROCHLORIDE
  12. LISINOPRIL. [Concomitant]
     Active Substance: LISINOPRIL
  13. ALLOPURINOL. [Concomitant]
     Active Substance: ALLOPURINOL
  14. GEMFIBROZIL. [Concomitant]
     Active Substance: GEMFIBROZIL
  15. METRONIDAZOLE. [Suspect]
     Active Substance: METRONIDAZOLE
  16. INLYTA [Suspect]
     Active Substance: AXITINIB
     Route: 048
     Dates: start: 20200401, end: 20200501
  17. AMLODIPINE [Concomitant]
     Active Substance: AMLODIPINE BESYLATE
  18. METFORMIN [Concomitant]
     Active Substance: METFORMIN HYDROCHLORIDE

REACTIONS (1)
  - Death [None]
